FAERS Safety Report 17131940 (Version 1)
Quarter: 2019Q4

REPORT INFORMATION
  Report Type: Spontaneous
  Country: US (occurrence: US)
  Receive Date: 20191209
  Receipt Date: 20191209
  Transmission Date: 20200122
  Serious: No
  Sender: FDA-Public Use
  Company Number: US-UCBSA-2016049963

PATIENT
  Sex: Female
  Weight: 115 kg

DRUGS (3)
  1. VIMPAT [Suspect]
     Active Substance: LACOSAMIDE
     Indication: EPILEPSY
     Dosage: 50 MG, 2X/DAY (BID)
     Dates: start: 2010
  2. VIMPAT [Suspect]
     Active Substance: LACOSAMIDE
     Dosage: 100 MG, 2X/DAY (BID)
  3. VIMPAT [Suspect]
     Active Substance: LACOSAMIDE
     Dosage: 100 MG IN AM 50MG IN PM, 2X/DAY (BID)
     Dates: end: 201611

REACTIONS (5)
  - Lethargy [Unknown]
  - Decreased appetite [Unknown]
  - Drug intolerance [Unknown]
  - Fatigue [Unknown]
  - Somnolence [Unknown]
